FAERS Safety Report 5911655-4 (Version None)
Quarter: 2008Q4

REPORT INFORMATION
  Report Type: 
  Country: None (occurrence: None)
  Receive Date: 20081003
  Receipt Date: 20080924
  Transmission Date: 20090506
  Serious: Yes (Death, Hospitalization)
  Sender: FDA-Public Use
  Company Number: 2008BI017517

PATIENT
  Age: 59 Year
  Sex: Male
  Weight: 97.977 kg

DRUGS (1)
  1. TYSABRI [Suspect]
     Indication: MULTIPLE SCLEROSIS
     Dosage: 300 MG; QM; IV
     Route: 042
     Dates: start: 20070227, end: 20080528

REACTIONS (8)
  - BRONCHITIS [None]
  - CARDIAC ARREST [None]
  - CONDITION AGGRAVATED [None]
  - METASTASES TO BONE [None]
  - MULTIPLE SCLEROSIS [None]
  - PNEUMONIA [None]
  - SMALL CELL LUNG CANCER STAGE UNSPECIFIED [None]
  - SYNCOPE [None]
